FAERS Safety Report 11790463 (Version 2)
Quarter: 2016Q2

REPORT INFORMATION
  Report Type: Spontaneous
  Country: US (occurrence: US)
  Receive Date: 20151201
  Receipt Date: 20160428
  Transmission Date: 20160815
  Serious: Yes (Other)
  Sender: FDA-Public Use
  Company Number: US-BAYER-2015-479772

PATIENT
  Age: 28 Year
  Sex: Female

DRUGS (1)
  1. MIRENA [Suspect]
     Active Substance: LEVONORGESTREL
     Dosage: 20 MCG/24HR, CONT
     Route: 015
     Dates: start: 2006

REACTIONS (6)
  - Papilloedema [None]
  - Benign intracranial hypertension [None]
  - Language disorder [None]
  - Vision blurred [None]
  - Headache [None]
  - Dizziness [None]

NARRATIVE: CASE EVENT DATE: 201003
